FAERS Safety Report 10230328 (Version 2)
Quarter: 2014Q3

REPORT INFORMATION
  Report Type: Spontaneous
  Country: JP (occurrence: JP)
  Receive Date: 20140611
  Receipt Date: 20140815
  Transmission Date: 20150326
  Serious: Yes (Other)
  Sender: FDA-Public Use
  Company Number: JP-ELI_LILLY_AND_COMPANY-JP201406001612

PATIENT
  Age: 35 Year
  Sex: Male
  Weight: 88 kg

DRUGS (8)
  1. ROHYPNOL [Suspect]
     Active Substance: FLUNITRAZEPAM
     Indication: AGITATION
     Dosage: 2 MG, UNK
     Route: 042
     Dates: start: 20140515, end: 20140515
  2. ZYPREXA ZYDIS [Concomitant]
     Active Substance: OLANZAPINE
     Indication: SCHIZOPHRENIA
     Dosage: 15 MG, QD, BEFORE BEDTIME
     Route: 048
     Dates: start: 20140502
  3. DEPAKENE [Concomitant]
     Active Substance: VALPROIC ACID
     Indication: IMPULSIVE BEHAVIOUR
  4. ZYPREXA [Suspect]
     Active Substance: OLANZAPINE
     Indication: SCHIZOPHRENIA
     Dosage: 10 MG, UNK
     Route: 030
     Dates: start: 20140515, end: 20140515
  5. DEPAKENE [Concomitant]
     Active Substance: VALPROIC ACID
     Indication: AGITATION
     Dosage: 200 MG, BID
     Route: 048
     Dates: start: 20140502
  6. INVEGA [Concomitant]
     Active Substance: PALIPERIDONE
     Indication: SCHIZOPHRENIA
     Dosage: 9 MG, QD
     Route: 048
     Dates: start: 20140502
  7. ROHYPNOL [Concomitant]
     Active Substance: FLUNITRAZEPAM
     Indication: INSOMNIA
     Dosage: 1 MG, QD, BEFORE BEDTIME
     Route: 048
     Dates: start: 20140502
  8. ARTANE [Concomitant]
     Active Substance: TRIHEXYPHENIDYL HYDROCHLORIDE
     Indication: EXTRAPYRAMIDAL DISORDER
     Dosage: 2 MG, TID
     Route: 048
     Dates: start: 20140502

REACTIONS (1)
  - Respiratory depression [Recovered/Resolved]

NARRATIVE: CASE EVENT DATE: 20140515
